FAERS Safety Report 8930495 (Version 1)
Quarter: 2012Q4

REPORT INFORMATION
  Report Type: 
  Country: US (occurrence: US)
  Receive Date: 20121128
  Receipt Date: 20121128
  Transmission Date: 20130627
  Serious: Yes (Other)
  Sender: FDA-Public Use
  Company Number: US-BAYER-2011-015556

PATIENT
  Age: 73 Year
  Sex: Male

DRUGS (3)
  1. NEXAVAR [Suspect]
     Indication: THYROID CANCER
     Dosage: 400 mg, BID
     Route: 048
     Dates: start: 20110208, end: 20110302
  2. NEXAVAR [Suspect]
     Indication: THYROID CANCER
     Dosage: 400 mg, QD
     Dates: start: 20110303
  3. NEXAVAR [Suspect]
     Indication: THYROID CANCER
     Dosage: dose lowered, exact dose unknown

REACTIONS (12)
  - Psychotic behaviour [None]
  - Hypersomnia [None]
  - Rash [Recovered/Resolved]
  - Musculoskeletal pain [Not Recovered/Not Resolved]
  - Fatigue [None]
  - Decreased appetite [None]
  - Pain in extremity [Recovered/Resolved]
  - Skin disorder [None]
  - Skin exfoliation [Not Recovered/Not Resolved]
  - Oedema peripheral [None]
  - Pain in extremity [None]
  - Off label use [None]
